FAERS Safety Report 10671515 (Version 6)
Quarter: 2015Q2

REPORT INFORMATION
  Report Type: Spontaneous
  Country: US (occurrence: US)
  Receive Date: 20141223
  Receipt Date: 20150630
  Transmission Date: 20150821
  Serious: Yes (Other)
  Sender: FDA-Public Use
  Company Number: US-009507513-98061133

PATIENT
  Sex: Male
  Weight: 72.56 kg

DRUGS (5)
  1. ZERIT [Concomitant]
     Active Substance: STAVUDINE
     Indication: HIV INFECTION
     Dosage: UNK
     Dates: start: 1990
  2. EPIVIR [Concomitant]
     Active Substance: LAMIVUDINE
     Indication: HIV INFECTION
     Dosage: UNK
     Dates: start: 1995
  3. VIRACEPT [Concomitant]
     Active Substance: NELFINAVIR MESYLATE
     Indication: HIV INFECTION
     Dosage: UNK
     Dates: start: 1995
  4. PROPECIA [Suspect]
     Active Substance: FINASTERIDE
     Indication: ALOPECIA
     Dosage: 1 MG, QD
     Route: 048
     Dates: start: 199801, end: 20070426
  5. PROPECIA [Suspect]
     Active Substance: FINASTERIDE
     Dosage: UNK
     Dates: start: 2000

REACTIONS (22)
  - Herpes zoster [Unknown]
  - Sexual dysfunction [Unknown]
  - Depression [Unknown]
  - Cognitive disorder [Not Recovered/Not Resolved]
  - Basal cell carcinoma [Unknown]
  - Hyperlipidaemia [Unknown]
  - Penis injury [Unknown]
  - Libido decreased [Unknown]
  - Ejaculation disorder [Unknown]
  - Brain injury [Unknown]
  - Hormone level abnormal [Unknown]
  - Abnormal loss of weight [Recovering/Resolving]
  - Erectile dysfunction [Unknown]
  - Stress [Unknown]
  - Hypotension [Not Recovered/Not Resolved]
  - Testicular failure [Unknown]
  - Carotid bruit [Unknown]
  - Semen volume decreased [Unknown]
  - Loss of libido [Unknown]
  - Anxiety [Not Recovered/Not Resolved]
  - Testicular disorder [Unknown]
  - Herpes zoster [Recovered/Resolved]

NARRATIVE: CASE EVENT DATE: 199802
